FAERS Safety Report 24766385 (Version 2)
Quarter: 2024Q4

REPORT INFORMATION
  Report Type: Spontaneous
  Country: US (occurrence: US)
  Receive Date: 20241223
  Receipt Date: 20241230
  Transmission Date: 20250115
  Serious: No
  Sender: ROCHE
  Company Number: US-ROCHE-10000161264

PATIENT
  Age: 71 Year
  Sex: Male

DRUGS (11)
  1. OBINUTUZUMAB [Suspect]
     Active Substance: OBINUTUZUMAB
     Indication: Chronic lymphocytic leukaemia
     Route: 065
     Dates: start: 201912
  2. VENETOCLAX [Suspect]
     Active Substance: VENETOCLAX
     Indication: Chronic lymphocytic leukaemia
     Route: 050
     Dates: start: 201912
  3. VENETOCLAX [Suspect]
     Active Substance: VENETOCLAX
     Route: 050
     Dates: start: 201912
  4. VENETOCLAX [Suspect]
     Active Substance: VENETOCLAX
     Route: 050
     Dates: start: 201912
  5. VENETOCLAX [Suspect]
     Active Substance: VENETOCLAX
     Route: 050
     Dates: start: 201912
  6. BASILIXIMAB [Concomitant]
     Active Substance: BASILIXIMAB
  7. MYCOPHENOLIC ACID [Concomitant]
     Active Substance: MYCOPHENOLIC ACID
  8. TACROLIMUS [Concomitant]
     Active Substance: TACROLIMUS
  9. PREDNISONE [Concomitant]
     Active Substance: PREDNISONE
  10. SIROLIMUS [Concomitant]
     Active Substance: SIROLIMUS
  11. FILGRASTIM SNDZ [Concomitant]

REACTIONS (1)
  - Neutropenia [Not Recovered/Not Resolved]
